FAERS Safety Report 4392130-8 (Version None)
Quarter: 2004Q3

REPORT INFORMATION
  Report Type: 
  Country: None (occurrence: None)
  Receive Date: 20040702
  Receipt Date: 20040622
  Transmission Date: 20050211
  Serious: Yes (Hospitalization, Other)
  Sender: FDA-Public Use
  Company Number: HQWYE050224MAR04

PATIENT
  Age: 52 Year
  Sex: Female

DRUGS (12)
  1. MYLOTARG [Suspect]
     Indication: ACUTE MYELOID LEUKAEMIA
     Dosage: SEE IMAGE
     Route: 042
     Dates: start: 20040308, end: 20040308
  2. DILAUDID [Concomitant]
  3. ATIVAN [Concomitant]
  4. ZELNORM [Concomitant]
  5. ZOVIRAX [Concomitant]
  6. LEXAPRO [Concomitant]
  7. BENTYL [Concomitant]
  8. CITRUCEL (METHYLCELLULOSE) [Concomitant]
  9. PROTONIX [Concomitant]
  10. CARAFATE [Concomitant]
  11. LACUTLOSE (LACTULOSE) [Concomitant]
  12. FLONASE [Concomitant]

REACTIONS (6)
  - ACUTE MYELOID LEUKAEMIA [None]
  - CONSTIPATION [None]
  - EPISTAXIS [None]
  - FEBRILE NEUTROPENIA [None]
  - MALIGNANT NEOPLASM PROGRESSION [None]
  - PANCREATITIS [None]
